FAERS Safety Report 4773243-5 (Version None)
Quarter: 2005Q3

REPORT INFORMATION
  Report Type: 
  Country: None (occurrence: None)
  Receive Date: 20050916
  Receipt Date: 20050902
  Transmission Date: 20060218
  Serious: Yes (Hospitalization)
  Sender: FDA-Public Use
  Company Number: 2005123673

PATIENT
  Age: 62 Year
  Sex: Female
  Weight: 82.1011 kg

DRUGS (2)
  1. ROGAINE [Suspect]
     Indication: ALOPECIA
     Dosage: 1 ML TWICE DAILY THEN UNKNOWN ONCE
     Dates: start: 19900101, end: 20040201
  2. ROGAINE [Suspect]
     Indication: ALOPECIA
     Dosage: UNSPECIFIED AMOUNT ONCE
     Dates: end: 20040201

REACTIONS (3)
  - CEREBROVASCULAR ACCIDENT [None]
  - HAIR COLOUR CHANGES [None]
  - HAIR TEXTURE ABNORMAL [None]
